FAERS Safety Report 22041991 (Version 1)
Quarter: 2023Q1

REPORT INFORMATION
  Report Type: Spontaneous
  Country: CA (occurrence: CA)
  Receive Date: 20230227
  Receipt Date: 20230227
  Transmission Date: 20230418
  Serious: Yes (Other)
  Sender: FDA-Public Use
  Company Number: CA-PFIZER INC-2020322398

PATIENT
  Age: 57 Year
  Sex: Female

DRUGS (11)
  1. XELJANZ XR [Suspect]
     Active Substance: TOFACITINIB CITRATE
     Indication: Rheumatoid arthritis
     Dosage: 11 MG, 1X/DAY
     Route: 048
     Dates: start: 20200127, end: 20221202
  2. ARTHROTEC [Concomitant]
     Active Substance: DICLOFENAC SODIUM\MISOPROSTOL
     Dosage: 50 MG, 3X/DAY, DOSE WILL BE DECREASED IN A FEW MONTHS
     Route: 065
  3. AMLODIPINE [Concomitant]
     Active Substance: AMLODIPINE BESYLATE
     Indication: Hypertension
     Dosage: 10 MG, 1X/DAY
     Route: 065
  4. FOLIC ACID [Concomitant]
     Active Substance: FOLIC ACID
     Dosage: 5 MG, WEEKLY
  5. METHOTREXATE [Concomitant]
     Active Substance: METHOTREXATE
     Dosage: UNK
     Route: 065
  6. METHOTREXATE [Concomitant]
     Active Substance: METHOTREXATE
     Dosage: 1 DF, DOSAGE INFORMATION UNAVAILABLE
     Route: 065
  7. METHOTREXATE [Concomitant]
     Active Substance: METHOTREXATE
     Dosage: 12500 UG, WEEKLY
     Route: 065
  8. OLMESARTAN [Concomitant]
     Active Substance: OLMESARTAN
     Indication: Hypertension
     Dosage: 20 MG, 1X/DAY
     Route: 065
  9. TYLENOL [Concomitant]
     Active Substance: ACETAMINOPHEN
     Dosage: UNK, AS NEEDED
     Route: 065
  10. VIMOVO [Concomitant]
     Active Substance: ESOMEPRAZOLE MAGNESIUM\NAPROXEN
     Dosage: 500 MG, 2X/DAY
     Route: 065
  11. COVID-19 VACCINE [Concomitant]
     Indication: COVID-19 immunisation

REACTIONS (22)
  - Deep vein thrombosis [Unknown]
  - Spinal disorder [Unknown]
  - Drug ineffective [Unknown]
  - Mobility decreased [Unknown]
  - Musculoskeletal stiffness [Not Recovered/Not Resolved]
  - Pain [Not Recovered/Not Resolved]
  - Paraesthesia [Not Recovered/Not Resolved]
  - Arthralgia [Unknown]
  - Blood pressure increased [Unknown]
  - Central obesity [Unknown]
  - Osteoarthritis [Unknown]
  - Mouth ulceration [Not Recovered/Not Resolved]
  - Lip ulceration [Not Recovered/Not Resolved]
  - Stomatitis [Unknown]
  - Weight increased [Unknown]
  - Sleep disorder [Unknown]
  - Condition aggravated [Unknown]
  - Joint swelling [Not Recovered/Not Resolved]
  - C-reactive protein increased [Unknown]
  - Anxiety [Unknown]
  - Illness [Unknown]
  - Upper respiratory tract infection [Unknown]

NARRATIVE: CASE EVENT DATE: 20200701
